FAERS Safety Report 25858804 (Version 1)
Quarter: 2025Q3

REPORT INFORMATION
  Report Type: Spontaneous
  Country: US (occurrence: None)
  Receive Date: 20250928
  Receipt Date: 20250928
  Transmission Date: 20251021
  Serious: Yes (Hospitalization)
  Sender: FDA-CTU
  Company Number: None

PATIENT
  Sex: Male

DRUGS (5)
  1. VYNDAMAX [Suspect]
     Active Substance: TAFAMIDIS
     Indication: Acquired ATTR amyloidosis
     Dosage: TAKE 1 CAPSULE BY MOUTH DAILY
     Route: 048
     Dates: start: 20241119
  2. ALBUTEROL AER HFA [Concomitant]
  3. ALLOPURINOL [Concomitant]
     Active Substance: ALLOPURINOL
  4. CARVEDILOL [Concomitant]
     Active Substance: CARVEDILOL
  5. PEG-3350/KCL SOL /SODIUM [Concomitant]

REACTIONS (1)
  - Gout [None]
